FAERS Safety Report 15467229 (Version 1)
Quarter: 2018Q4

REPORT INFORMATION
  Report Type: Spontaneous
  Country: US (occurrence: US)
  Receive Date: 20181001
  Receipt Date: 20181001
  Transmission Date: 20190204
  Serious: Yes (Hospitalization)
  Sender: FDA-Public Use
  Company Number: None

PATIENT
  Age: 19 Year
  Sex: Male
  Weight: 84.4 kg

DRUGS (3)
  1. CISPLATIN. [Suspect]
     Active Substance: CISPLATIN
     Dates: end: 20180908
  2. IFOSFAMIDE. [Suspect]
     Active Substance: IFOSFAMIDE
     Dates: end: 20180908
  3. PACLITAXEL. [Suspect]
     Active Substance: PACLITAXEL
     Dates: end: 20180904

REACTIONS (5)
  - Staphylococcal infection [None]
  - Pyrexia [None]
  - Device related infection [None]
  - Blood culture positive [None]
  - Bacterial infection [None]

NARRATIVE: CASE EVENT DATE: 20180917
